FAERS Safety Report 9110037 (Version 1)
Quarter: 2013Q1

REPORT INFORMATION
  Report Type: Spontaneous
  Country: US (occurrence: US)
  Receive Date: 20130222
  Receipt Date: 20130222
  Transmission Date: 20140127
  Serious: Yes (Death)
  Sender: FDA-Public Use
  Company Number: US-UCBSA-078794

PATIENT
  Sex: Male

DRUGS (1)
  1. KEPPRA XR [Suspect]
     Dosage: 500 MG,5 TABLETS PER DAY

REACTIONS (1)
  - Death [Fatal]
